FAERS Safety Report 5590256-4 (Version None)
Quarter: 2008Q1

REPORT INFORMATION
  Report Type: 
  Country: None (occurrence: None)
  Receive Date: 20080114
  Receipt Date: 20080108
  Transmission Date: 20080703
  Serious: Yes (Death)
  Sender: FDA-Public Use
  Company Number: JP-ASTRAZENECA-2007AP07540

PATIENT
  Age: 69 Year
  Sex: Male
  Weight: 59 kg

DRUGS (8)
  1. IRESSA [Suspect]
     Indication: LUNG ADENOCARCINOMA
     Route: 048
     Dates: start: 20070821, end: 20071106
  2. MUCOSOLVAN L [Concomitant]
     Route: 048
  3. ZANTAC [Concomitant]
     Route: 048
  4. ADJUST A [Concomitant]
     Route: 048
  5. MAGMITT [Concomitant]
     Route: 048
  6. ADONA [Concomitant]
     Route: 048
  7. HOKUNALIN:TAPE [Concomitant]
     Dosage: TAPE
     Route: 062
  8. LAXOBERON [Concomitant]
     Dosage: DOSE UNKNOWN
     Route: 048

REACTIONS (1)
  - LUNG DISORDER [None]
